FAERS Safety Report 5005274-4 (Version None)
Quarter: 2006Q2

REPORT INFORMATION
  Report Type: 
  Country: None (occurrence: None)
  Receive Date: 20060518
  Receipt Date: 20060515
  Transmission Date: 20061013
  Serious: Yes (Other)
  Sender: FDA-Public Use
  Company Number: CA-GLAXOSMITHKLINE-A0605918A

PATIENT
  Age: 77 Year

DRUGS (4)
  1. MALARONE [Suspect]
     Indication: DRUG USE FOR UNKNOWN INDICATION
     Route: 048
  2. COUMADIN [Suspect]
     Indication: DRUG USE FOR UNKNOWN INDICATION
     Dosage: 3.75MG PER DAY
     Route: 065
  3. LANOXIN [Concomitant]
  4. LOPRESSOR [Concomitant]

REACTIONS (2)
  - HAEMATOMA [None]
  - PROTHROMBIN TIME [None]
